FAERS Safety Report 9284575 (Version 1)
Quarter: 2013Q2

REPORT INFORMATION
  Report Type: Spontaneous
  Country: GB (occurrence: GB)
  Receive Date: 20130512
  Receipt Date: 20130512
  Transmission Date: 20140414
  Serious: Yes (Other)
  Sender: FDA-Public Use
  Company Number: GB-TEVA-402616ISR

PATIENT
  Age: 68 Year
  Sex: Female
  Weight: 54.9 kg

DRUGS (19)
  1. MIRTAZAPINE [Suspect]
     Dates: start: 20130326
  2. E45 ITCH RELIEF [Concomitant]
     Dates: start: 20120919, end: 20130327
  3. LISINOPRIL [Concomitant]
     Dates: start: 20130118, end: 20130416
  4. PARACETAMOL [Concomitant]
     Dates: start: 20130118, end: 20130416
  5. GLYCEROL [Concomitant]
     Dates: start: 20130118, end: 20130416
  6. GLYCERYL TRINITRATE [Concomitant]
     Dates: start: 20130118, end: 20130318
  7. SODIUM CROMOGLICATE [Concomitant]
     Dates: start: 20130118, end: 20130416
  8. VENTOLIN [Concomitant]
     Dates: start: 20130118, end: 20130416
  9. RANITIDINE [Concomitant]
     Dates: start: 20130118, end: 20130418
  10. SENNA [Concomitant]
     Dates: start: 20130118, end: 20130416
  11. CALCICHEW D3 [Concomitant]
     Dates: start: 20130118, end: 20130416
  12. ACRIVASTINE [Concomitant]
     Dates: start: 20130118, end: 20130416
  13. ASPIRIN [Concomitant]
     Dates: start: 20130118, end: 20130416
  14. FLUTICASONE [Concomitant]
     Dates: start: 20130118, end: 20130416
  15. FORCEVAL [Concomitant]
     Dates: start: 20130118, end: 20130416
  16. EZETIMIBE [Concomitant]
     Dates: start: 20130118, end: 20130416
  17. FERROUS FUMARATE [Concomitant]
     Dates: start: 20130118, end: 20130416
  18. VISCOTEARS [Concomitant]
     Dates: start: 20130218, end: 20130318
  19. OTOMIZE [Concomitant]
     Dates: start: 20130219, end: 20130226

REACTIONS (1)
  - Acquired epidermolysis bullosa [Recovered/Resolved]
